FAERS Safety Report 9955368 (Version 1)
Quarter: 2014Q1

REPORT INFORMATION
  Report Type: Report from Study
  Country: US (occurrence: US)
  Receive Date: 20140304
  Receipt Date: 20140304
  Transmission Date: 20141002
  Serious: No
  Sender: FDA-Public Use
  Company Number: US-ABBVIE-13P-163-1089667-00

PATIENT
  Age: 22 Year
  Sex: Male

DRUGS (2)
  1. HUMIRA [Suspect]
     Indication: CROHN^S DISEASE
  2. HUMIRA [Suspect]
     Dates: start: 20130506

REACTIONS (4)
  - Malaise [Recovered/Resolved]
  - Nasal congestion [Recovered/Resolved]
  - Rhinitis [Recovered/Resolved]
  - Oropharyngeal pain [Recovered/Resolved]
